FAERS Safety Report 9352978 (Version 1)
Quarter: 2013Q2

REPORT INFORMATION
  Report Type: Spontaneous
  Country: FR (occurrence: FR)
  Receive Date: 20130618
  Receipt Date: 20130618
  Transmission Date: 20140414
  Serious: Yes (Hospitalization)
  Sender: FDA-Public Use
  Company Number: FR-ROCHE-1236979

PATIENT
  Age: 58 Year
  Sex: Male

DRUGS (10)
  1. ROCEPHINE [Suspect]
     Indication: PNEUMONIA
     Route: 042
     Dates: start: 20121218, end: 20130102
  2. ZYVOXID [Suspect]
     Indication: PNEUMONIA
     Route: 065
     Dates: start: 20121219, end: 20130102
  3. TAHOR [Concomitant]
     Route: 065
  4. DUPHALAC [Concomitant]
  5. TEMERIT [Concomitant]
     Route: 065
  6. MONO-TILDIEM [Concomitant]
     Route: 065
  7. TOPALGIC [Concomitant]
     Route: 065
  8. INEXIUM [Concomitant]
     Route: 065
  9. ATARAX (FRANCE) [Concomitant]
     Route: 065
  10. SPIRAMYCINE [Concomitant]

REACTIONS (1)
  - Acute generalised exanthematous pustulosis [Recovered/Resolved]
